FAERS Safety Report 10329867 (Version 2)
Quarter: 2014Q3

REPORT INFORMATION
  Report Type: Spontaneous
  Country: US (occurrence: US)
  Receive Date: 20140721
  Receipt Date: 20140721
  Transmission Date: 20150326
  Serious: Yes (Hospitalization, Other)
  Sender: FDA-Public Use
  Company Number: US-009507513-2011SP016557

PATIENT
  Sex: Female
  Weight: 96.16 kg

DRUGS (2)
  1. CIPROFLOXACIN. [Concomitant]
     Active Substance: CIPROFLOXACIN
     Indication: URINARY TRACT INFECTION
     Dosage: UNK
     Route: 048
     Dates: start: 20080403
  2. NUVARING [Suspect]
     Active Substance: ETHINYL ESTRADIOL\ETONOGESTREL
     Indication: CONTRACEPTION
     Dates: end: 20080413

REACTIONS (9)
  - Eczema [Unknown]
  - Depression [Unknown]
  - Unintended pregnancy [Recovered/Resolved]
  - Urinary tract infection [Unknown]
  - Pulmonary embolism [Recovered/Resolved]
  - Muscle spasms [Unknown]
  - Pulmonary infarction [Unknown]
  - Pyelonephritis [Recovered/Resolved]
  - Myalgia [Unknown]

NARRATIVE: CASE EVENT DATE: 200609
